FAERS Safety Report 9085203 (Version 1)
Quarter: 2013Q1

REPORT INFORMATION
  Report Type: Spontaneous
  Country: US (occurrence: US)
  Receive Date: 20130130
  Receipt Date: 20130130
  Transmission Date: 20140127
  Serious: No
  Sender: FDA-Public Use
  Company Number: US-BAYER-2013-005922

PATIENT
  Age: 67 Year
  Sex: Female

DRUGS (2)
  1. MAGNEVIST [Suspect]
     Dosage: 15 ML, UNK
  2. MAGNEVIST [Suspect]
     Dosage: 2 ML, UNK

REACTIONS (1)
  - Vomiting [Recovered/Resolved]
